FAERS Safety Report 23247056 (Version 1)
Quarter: 2023Q4

REPORT INFORMATION
  Report Type: Spontaneous
  Country: US (occurrence: US)
  Receive Date: 20231130
  Receipt Date: 20231130
  Transmission Date: 20240110
  Serious: Yes (Other)
  Sender: FDA-Public Use
  Company Number: US-BRISTOL-MYERS SQUIBB COMPANY-2023-173363

PATIENT
  Age: 58 Year
  Sex: Female

DRUGS (1)
  1. NIVOLUMAB [Suspect]
     Active Substance: NIVOLUMAB
     Indication: Metastatic malignant melanoma
     Dosage: (480 MG/CYCLE, 10 MONTHS 10 CYCLES)
     Dates: start: 2019, end: 2020

REACTIONS (3)
  - Condition aggravated [Unknown]
  - Hypothyroidism [Unknown]
  - Fatigue [Unknown]
